FAERS Safety Report 6913312-4 (Version None)
Quarter: 2010Q3

REPORT INFORMATION
  Report Type: 
  Country: None (occurrence: None)
  Receive Date: 20100809
  Receipt Date: 20100730
  Transmission Date: 20110219
  Serious: Yes (Hospitalization, Other)
  Sender: FDA-Public Use
  Company Number: US-ELI_LILLY_AND_COMPANY-US201004003345

PATIENT
  Sex: Female

DRUGS (5)
  1. BYETTA [Suspect]
     Indication: TYPE 2 DIABETES MELLITUS
     Dosage: 10 UG, UNK
     Route: 058
     Dates: start: 20090807
  2. BYETTA [Suspect]
     Dosage: 5 UG, UNK
     Route: 058
  3. ACE INHIBITOR NOS [Concomitant]
  4. GLYBURIDE AND METFORMIN HYDROCHLORIDE [Concomitant]
     Dosage: UNK, 2/D
     Route: 048
  5. ACTOS /SCH/ [Concomitant]
     Dosage: 15 MG, DAILY (1/D)

REACTIONS (3)
  - DRUG INTOLERANCE [None]
  - GALLBLADDER CANCER [None]
  - PANCREATITIS [None]
